FAERS Safety Report 7889130-X (Version None)
Quarter: 2011Q4

REPORT INFORMATION
  Report Type: 
  Country: None (occurrence: None)
  Receive Date: 20111103
  Receipt Date: 20111024
  Transmission Date: 20120403
  Serious: Yes (Hospitalization)
  Sender: FDA-Public Use
  Company Number: US-BAYER-2011-063867

PATIENT
  Age: 42 Year
  Sex: Female
  Weight: 68.027 kg

DRUGS (17)
  1. COLACE [Concomitant]
  2. ZOFRAN [Concomitant]
  3. PHENERGAN HCL [Concomitant]
     Dosage: UNK UNK, PRN
  4. ATIVAN [Concomitant]
  5. UROCIT-K [Concomitant]
  6. COLON CLENZ [Concomitant]
  7. HYDROCHLOROTHIAZIDE [Concomitant]
  8. DROSPIRENONE AND ETHINYL ESTRADIOL [Suspect]
     Indication: CONTRACEPTION
     Dosage: UNK
     Dates: start: 20080801, end: 20100401
  9. DIFLUCAN [Concomitant]
  10. AMBIEN [Concomitant]
  11. MORPHINE [Concomitant]
  12. IV HYDRATION [Concomitant]
  13. MARINOL [Concomitant]
  14. MIRALAX [Concomitant]
  15. YASMIN [Suspect]
     Indication: CONTRACEPTION
     Dosage: UNK
     Dates: start: 20060101, end: 20080501
  16. POTASSIUM [Concomitant]
  17. AMITIZA [Concomitant]

REACTIONS (4)
  - INJURY [None]
  - GALLBLADDER DISORDER [None]
  - BILIARY DYSKINESIA [None]
  - PAIN [None]
